FAERS Safety Report 12437271 (Version 1)
Quarter: 2016Q2

REPORT INFORMATION
  Report Type: Spontaneous
  Country: US (occurrence: US)
  Receive Date: 20160606
  Receipt Date: 20160606
  Transmission Date: 20160815
  Serious: Yes (Other)
  Sender: FDA-Public Use
  Company Number: US-PAR PHARMACEUTICAL COMPANIES-2016SCPR015501

PATIENT

DRUGS (4)
  1. ZOLPIDEM TARTRATE ER [Interacting]
     Active Substance: ZOLPIDEM TARTRATE
     Indication: INSOMNIA
     Dosage: 10 MG, HS
     Route: 065
  2. VENLAFAXINE HYDROCHLORIDE. [Suspect]
     Active Substance: VENLAFAXINE HYDROCHLORIDE
     Indication: PRODUCT USED FOR UNKNOWN INDICATION
     Dosage: 150 MG / DAY
     Route: 065
  3. ALPRAZOLAM. [Suspect]
     Active Substance: ALPRAZOLAM
     Indication: PHOBIA OF FLYING
     Dosage: UNK, UNKNOWN
     Route: 065
  4. SERTRALINE [Interacting]
     Active Substance: SERTRALINE HYDROCHLORIDE
     Indication: PRODUCT USED FOR UNKNOWN INDICATION
     Dosage: 50 MG / DAY
     Route: 065

REACTIONS (10)
  - Intentional overdose [Unknown]
  - Mental disorder [Unknown]
  - Depression [Unknown]
  - Toxicity to various agents [Unknown]
  - Homicidal ideation [Unknown]
  - Condition aggravated [Unknown]
  - Suicide attempt [Unknown]
  - Homicide [Unknown]
  - Drug interaction [Unknown]
  - Akathisia [Unknown]
